FAERS Safety Report 10077722 (Version 2)
Quarter: 2014Q2

REPORT INFORMATION
  Report Type: Spontaneous
  Country: US (occurrence: US)
  Receive Date: 20140414
  Receipt Date: 20140507
  Transmission Date: 20141212
  Serious: No
  Sender: FDA-Public Use
  Company Number: US-009507513-1404USA006098

PATIENT
  Sex: Female

DRUGS (3)
  1. PEGINTRON [Suspect]
     Indication: HEPATITIS C
     Dosage: 0.4 ML, QW, REDIPEN
     Route: 058
     Dates: start: 20140328
  2. REBETOL [Suspect]
     Indication: HEPATITIS C
     Dosage: 2 AM AND PM, BID (TWICE A DAY)
     Route: 048
     Dates: start: 20140328
  3. SOVALDI [Concomitant]
     Dosage: 1 DF PO,  QD
     Route: 048

REACTIONS (1)
  - Thirst [Unknown]
